FAERS Safety Report 15506925 (Version 5)
Quarter: 2019Q4

REPORT INFORMATION
  Report Type: Spontaneous
  Country: US (occurrence: US)
  Receive Date: 20181016
  Receipt Date: 20191024
  Transmission Date: 20200122
  Serious: Yes (Other)
  Sender: FDA-Public Use
  Company Number: US-PFIZER INC-2018420823

PATIENT
  Age: 55 Year
  Sex: Male

DRUGS (3)
  1. CIALIS [Suspect]
     Active Substance: TADALAFIL
     Dosage: 5 MG, 3 TIMES A WEEK
     Dates: start: 20150421, end: 20170329
  2. CIALIS [Suspect]
     Active Substance: TADALAFIL
     Dosage: 5 MG, 3 TIMES A WEEK
     Dates: start: 20150421, end: 20170329
  3. VIAGRA [Suspect]
     Active Substance: SILDENAFIL CITRATE
     Indication: BENIGN PROSTATIC HYPERPLASIA
     Dosage: UNK
     Route: 048
     Dates: start: 200304, end: 201506

REACTIONS (1)
  - Malignant melanoma [Unknown]

NARRATIVE: CASE EVENT DATE: 20151023
